FAERS Safety Report 9791539 (Version 2)
Quarter: 2014Q1

REPORT INFORMATION
  Report Type: Report from Study
  Country: US (occurrence: US)
  Receive Date: 20140101
  Receipt Date: 20140121
  Transmission Date: 20141002
  Serious: Yes (Death, Disabling)
  Sender: FDA-Public Use
  Company Number: US-US-EMD SERONO, INC.-7259739

PATIENT
  Sex: Female
  Weight: 41 kg

DRUGS (2)
  1. REBIF [Suspect]
     Indication: MULTIPLE SCLEROSIS
     Route: 057
     Dates: start: 20030717
  2. ALLEGRA                            /01314201/ [Concomitant]
     Indication: PRODUCT USED FOR UNKNOWN INDICATION

REACTIONS (3)
  - Upper respiratory tract infection [Fatal]
  - Pyrexia [Fatal]
  - Bedridden [Unknown]
